FAERS Safety Report 11280766 (Version 1)
Quarter: 2015Q3

REPORT INFORMATION
  Report Type: Spontaneous
  Country: US (occurrence: US)
  Receive Date: 20150717
  Receipt Date: 20150717
  Transmission Date: 20151125
  Serious: No
  Sender: FDA-Public Use
  Company Number: US-JNJFOC-20150609631

PATIENT
  Age: 26 Year

DRUGS (1)
  1. XARELTO [Suspect]
     Active Substance: RIVAROXABAN
     Indication: PULMONARY EMBOLISM
     Route: 048

REACTIONS (6)
  - Constipation [Unknown]
  - Gastrointestinal disorder [Unknown]
  - Weight increased [Unknown]
  - Abdominal distension [Unknown]
  - Asthenia [Unknown]
  - Peripheral swelling [Unknown]
